FAERS Safety Report 5499980-5 (Version None)
Quarter: 2007Q4

REPORT INFORMATION
  Report Type: 
  Country: None (occurrence: None)
  Receive Date: 20071026
  Receipt Date: 20071016
  Transmission Date: 20080405
  Serious: Yes (Hospitalization, Disabling, Other)
  Sender: FDA-Public Use
  Company Number: GB-PFIZER INC-2007088572

PATIENT
  Age: 68 Year
  Sex: Female
  Weight: 59 kg

DRUGS (11)
  1. PREGABALIN [Suspect]
     Route: 048
     Dates: start: 20070918, end: 20070928
  2. CALCICHEW-D3 [Concomitant]
     Route: 048
  3. FUROSEMIDE [Concomitant]
     Route: 048
  4. LANSOPRAZOLE [Concomitant]
     Route: 048
  5. OXYCODONE HCL [Concomitant]
     Route: 048
  6. PARACETAMOL [Concomitant]
     Route: 048
  7. PREDNISOLONE [Concomitant]
     Route: 048
  8. RISEDRONATE SODIUM [Concomitant]
     Route: 048
  9. MORPHINE SULFATE [Concomitant]
     Route: 048
  10. ACETYLSALICYLIC ACID SRT [Concomitant]
     Route: 048
  11. FUROSEMIDE [Concomitant]
     Route: 048

REACTIONS (4)
  - BALANCE DISORDER [None]
  - HYPERSOMNIA [None]
  - MUSCLE TWITCHING [None]
  - SOMNOLENCE [None]
